FAERS Safety Report 11338820 (Version 1)
Quarter: 2015Q3

REPORT INFORMATION
  Report Type: Spontaneous
  Country: US (occurrence: US)
  Receive Date: 20150803
  Receipt Date: 20150803
  Transmission Date: 20151125
  Serious: No
  Sender: FDA-Public Use
  Company Number: US-ELI_LILLY_AND_COMPANY-US200809000876

PATIENT
  Sex: Male

DRUGS (2)
  1. STRATTERA [Suspect]
     Active Substance: ATOMOXETINE HYDROCHLORIDE
     Indication: ATTENTION DEFICIT/HYPERACTIVITY DISORDER
     Dosage: 40 MG, UNK
  2. STRATTERA [Suspect]
     Active Substance: ATOMOXETINE HYDROCHLORIDE
     Dosage: 40 MG, DAILY (1/D)
     Dates: start: 20080903

REACTIONS (9)
  - Agitation [Unknown]
  - Anger [Unknown]
  - Mood swings [Unknown]
  - Tremor [Unknown]
  - Energy increased [Unknown]
  - Speech disorder [Unknown]
  - Emotional disorder [Unknown]
  - Feeling jittery [Unknown]
  - Somnolence [Unknown]
